FAERS Safety Report 8439553 (Version 2)
Quarter: 2013Q2

REPORT INFORMATION
  Report Type: Spontaneous
  Country: US (occurrence: None)
  Receive Date: 20120104
  Receipt Date: 20120508
  Transmission Date: 20140414
  Serious: Yes (Other)
  Sender: FDA-Public Use
  Company Number: 2011HGS-002878

PATIENT
  Age: 37 Year
  Sex: Female
  Weight: 72.58 kg

DRUGS (12)
  1. BENLYSTA [Suspect]
     Indication: SYSTEMIC LUPUS ERYTHEMATOSUS
     Dosage: 1 IN 14 D,  INTRAVENOUS DRIP
     Route: 041
     Dates: start: 20111115
  2. BENLYSTA [Suspect]
     Dosage: 1 IN 14 D,  INTRAVENOUS DRIP
     Route: 041
     Dates: start: 20111115
  3. PLAQUENIL [Concomitant]
  4. IMURAN [Concomitant]
  5. MEDROL [Concomitant]
  6. DIAMOX SEQUELS [Concomitant]
  7. POTASSIUM CHLORIDE [Concomitant]
  8. CELEXA [Concomitant]
  9. RELPAX [Concomitant]
  10. FLEXERIL (CYCLOBENZPRINE HYDROCHLORIDE) [Concomitant]
  11. ZOFRAN [Concomitant]
  12. NORCO (VICODIN)(PARACETAMOL, HYDROCODONE BITARTRATE) [Concomitant]

REACTIONS (5)
  - ANXIETY [None]
  - DIARRHOEA [None]
  - HEADACHE [None]
  - URTICARIA [None]
  - Hypersensitivity [None]
